FAERS Safety Report 22269713 (Version 1)
Quarter: 2023Q2

REPORT INFORMATION
  Report Type: Report from Study
  Country: US (occurrence: US)
  Receive Date: 20230501
  Receipt Date: 20230501
  Transmission Date: 20230722
  Serious: Yes (Hospitalization)
  Sender: FDA-Public Use
  Company Number: US-SA-SAC20221226000950

PATIENT
  Age: 5 Year
  Sex: Male
  Weight: 19.6 kg

DRUGS (34)
  1. EFANESOCTOCOG ALFA [Suspect]
     Active Substance: EFANESOCTOCOG ALFA
     Indication: Factor VIII deficiency
     Dosage: 985 IU, 1X
     Route: 041
     Dates: start: 20221205, end: 20221205
  2. VANCOMYCIN [Concomitant]
     Active Substance: VANCOMYCIN
     Dosage: 125 IU, PRN
     Route: 042
     Dates: start: 20190729
  3. HEPARIN [Concomitant]
     Active Substance: HEPARIN SODIUM
     Indication: Prophylaxis
     Dosage: 500 IU, PRN
     Route: 042
     Dates: start: 20190729
  4. SODIUM CHLORIDE [Concomitant]
     Active Substance: SODIUM CHLORIDE
     Indication: Prophylaxis
     Dosage: 10 ML, PRN
     Route: 042
     Dates: start: 20180619
  5. LIDOCAINE [Concomitant]
     Active Substance: LIDOCAINE
     Indication: Prophylaxis
     Dosage: 2.5 %, PRN
     Route: 061
     Dates: start: 20201005
  6. LIDOCAINE [Concomitant]
     Active Substance: LIDOCAINE
     Dosage: 1 DF, 1X
     Route: 061
     Dates: start: 20221221, end: 20221221
  7. PRILOCAINE [Concomitant]
     Active Substance: PRILOCAINE
     Indication: Prophylaxis
     Dosage: 2.5 %, PRN
     Route: 061
     Dates: start: 20201005
  8. METHOCARBAMOL [Concomitant]
     Active Substance: METHOCARBAMOL
     Dosage: 187.5 MG, 1X
     Route: 048
     Dates: start: 20221221, end: 20221221
  9. MIDAZOLAM [Concomitant]
     Active Substance: MIDAZOLAM
     Dosage: 9.6 MG, 1X
     Route: 048
     Dates: start: 20221221, end: 20221221
  10. MIDAZOLAM [Concomitant]
     Active Substance: MIDAZOLAM
     Dosage: 2 MG, 1X
     Route: 042
     Dates: start: 20221222, end: 20221222
  11. FENTANYL [Concomitant]
     Active Substance: FENTANYL
     Dosage: 20 UG, 1X
     Route: 042
     Dates: start: 20221221, end: 20221221
  12. FENTANYL [Concomitant]
     Active Substance: FENTANYL
     Dosage: 25 UG, 1X
     Route: 042
     Dates: start: 20221222, end: 20221222
  13. ONDANSETRON [Concomitant]
     Active Substance: ONDANSETRON
     Dosage: 2 MG, 1X
     Route: 042
     Dates: start: 20221221, end: 20221221
  14. ONDANSETRON [Concomitant]
     Active Substance: ONDANSETRON
     Dosage: 2 MG, 1X
     Route: 042
     Dates: start: 20221222, end: 20221222
  15. ONDANSETRON [Concomitant]
     Active Substance: ONDANSETRON
     Dosage: 2.92 MG, 1X
     Route: 048
     Dates: start: 20221222, end: 20221222
  16. ACETAMINOPHEN [Concomitant]
     Active Substance: ACETAMINOPHEN
     Dosage: 194 MG, 1X
     Route: 048
     Dates: start: 20221221, end: 20221221
  17. ACETAMINOPHEN [Concomitant]
     Active Substance: ACETAMINOPHEN
     Dosage: 290 MG, PRN
     Route: 048
     Dates: start: 20221222, end: 20221222
  18. OXYCODONE [Concomitant]
     Active Substance: OXYCODONE
     Dosage: 3 MG, 1X
     Route: 048
     Dates: start: 20221221, end: 20221221
  19. PROPOFOL [Concomitant]
     Active Substance: PROPOFOL
     Dosage: 20 MG, 1X
     Route: 042
     Dates: start: 20221221, end: 20221221
  20. PROPOFOL [Concomitant]
     Active Substance: PROPOFOL
     Dosage: 60 MG, 1X
     Route: 042
     Dates: start: 20221222, end: 20221222
  21. ROCURONIUM [Concomitant]
     Active Substance: ROCURONIUM BROMIDE
     Dosage: 20 MG, 1X
     Route: 042
     Dates: start: 20221221, end: 20221221
  22. ROCURONIUM [Concomitant]
     Active Substance: ROCURONIUM BROMIDE
     Dosage: 10 MG, 1X
     Route: 042
     Dates: start: 20221221, end: 20221221
  23. ROCURONIUM [Concomitant]
     Active Substance: ROCURONIUM BROMIDE
     Dosage: 25 MG, 1X
     Route: 042
     Dates: start: 20221222, end: 20221222
  24. SUGAMMADEX SODIUM [Concomitant]
     Active Substance: SUGAMMADEX SODIUM
     Dosage: 1000 IU, 1X
     Route: 042
     Dates: start: 20221221, end: 20221221
  25. ANTIHEMOPHILIC FACTOR HUMAN [Concomitant]
     Active Substance: ANTIHEMOPHILIC FACTOR HUMAN
     Dosage: 1000 IU, 1X
     Route: 042
     Dates: start: 20221221, end: 20221221
  26. ANTIHEMOPHILIC FACTOR HUMAN [Concomitant]
     Active Substance: ANTIHEMOPHILIC FACTOR HUMAN
     Dosage: 1000 IU, 1X
     Route: 042
     Dates: start: 20221222, end: 20221222
  27. DEXMEDETOMIDINE [Concomitant]
     Active Substance: DEXMEDETOMIDINE
     Dosage: 4 UG, 1X
     Route: 042
     Dates: start: 20221221, end: 20221221
  28. DEXMEDETOMIDINE [Concomitant]
     Active Substance: DEXMEDETOMIDINE
     Dosage: 4 UG, 1X
     Route: 042
     Dates: start: 20221222, end: 20221222
  29. CEFAZOLIN [Concomitant]
     Active Substance: CEFAZOLIN
     Dosage: 740 MG, 1X
     Route: 042
     Dates: start: 20221221, end: 20221221
  30. CEFAZOLIN [Concomitant]
     Active Substance: CEFAZOLIN
     Dosage: 776 MG, 1X
     Route: 042
     Dates: start: 20221222, end: 20221222
  31. BUPIVACAINE [Concomitant]
     Active Substance: BUPIVACAINE
     Dosage: 6 ML, 1X
     Route: 058
     Dates: start: 20221221, end: 20221221
  32. BUPIVACAINE [Concomitant]
     Active Substance: BUPIVACAINE
     Dosage: 0.25 %, 1X
     Route: 058
     Dates: start: 20221222, end: 20221222
  33. MORPHINE [Concomitant]
     Active Substance: MORPHINE
     Dosage: 2 MG, 1X
     Route: 042
     Dates: start: 20221222, end: 20221222
  34. DIAZEPAM [Concomitant]
     Active Substance: DIAZEPAM
     Dosage: 1 MG, 1X
     Route: 042
     Dates: start: 20221222, end: 20221222

REACTIONS (1)
  - Vascular access site pain [Not Recovered/Not Resolved]

NARRATIVE: CASE EVENT DATE: 20221222
